FAERS Safety Report 7398408-8 (Version None)
Quarter: 2011Q2

REPORT INFORMATION
  Report Type: 
  Country: None (occurrence: None)
  Receive Date: 20110406
  Receipt Date: 20110331
  Transmission Date: 20111010
  Serious: Yes (Other)
  Sender: FDA-Public Use
  Company Number: DE-BRISTOL-MYERS SQUIBB COMPANY-15646144

PATIENT
  Age: 78 Year
  Sex: Male

DRUGS (7)
  1. INEGY [Concomitant]
     Dosage: 1DF=10/20MG
     Route: 048
  2. ONGLYZA [Suspect]
     Indication: TYPE 2 DIABETES MELLITUS
     Route: 048
     Dates: start: 20110321, end: 20110324
  3. METFORMINE [Concomitant]
  4. NEXIUM [Concomitant]
     Route: 048
  5. TAMSULOSIN HCL [Concomitant]
     Route: 048
  6. EXFORGE HCT [Concomitant]
     Dosage: 1DF=10/160/12.5 UNIT NOT SPECIFIED
     Route: 048
  7. ASPIRIN [Concomitant]
     Route: 048

REACTIONS (6)
  - ARRHYTHMIA [None]
  - PRURITUS [None]
  - PAIN OF SKIN [None]
  - BURNING SENSATION [None]
  - OEDEMA PERIPHERAL [None]
  - PAIN [None]
